FAERS Safety Report 23890381 (Version 8)
Quarter: 2024Q3

REPORT INFORMATION
  Report Type: Report from Study
  Country: US (occurrence: US)
  Receive Date: 20240523
  Receipt Date: 20240920
  Transmission Date: 20241016
  Serious: Yes (Hospitalization, Other)
  Sender: GILEAD
  Company Number: US-GILEAD-2024-0672837

PATIENT
  Sex: Female

DRUGS (5)
  1. AMBRISENTAN [Suspect]
     Active Substance: AMBRISENTAN
     Indication: Pulmonary arterial hypertension
     Dosage: 10 MG, QD
     Route: 065
     Dates: start: 20240506
  2. AMBRISENTAN [Suspect]
     Active Substance: AMBRISENTAN
     Dosage: 10 MG, QD
     Route: 065
     Dates: start: 20240506
  3. ADEMPAS [Concomitant]
     Active Substance: RIOCIGUAT
     Route: 065
  4. ELIQUIS [Concomitant]
     Active Substance: APIXABAN
  5. AMLODIPINE [Concomitant]
     Active Substance: AMLODIPINE BESYLATE

REACTIONS (23)
  - Blood pressure fluctuation [Unknown]
  - Pneumonia [Unknown]
  - Lower respiratory tract infection [Not Recovered/Not Resolved]
  - Fluid retention [Unknown]
  - Dizziness [Not Recovered/Not Resolved]
  - Migraine [Unknown]
  - Dyspepsia [Recovering/Resolving]
  - Ill-defined disorder [Not Recovered/Not Resolved]
  - Headache [Unknown]
  - Fatigue [Not Recovered/Not Resolved]
  - Blood pressure decreased [Unknown]
  - Sinusitis [Not Recovered/Not Resolved]
  - Nausea [Unknown]
  - Diarrhoea [Not Recovered/Not Resolved]
  - Apathy [Unknown]
  - Chest discomfort [Not Recovered/Not Resolved]
  - Wheezing [Unknown]
  - Weight increased [Unknown]
  - Oedema [Unknown]
  - Peripheral swelling [Unknown]
  - Malaise [Unknown]
  - Weight fluctuation [Unknown]
  - Haemoptysis [Unknown]
